FAERS Safety Report 19487191 (Version 3)
Quarter: 2021Q3

REPORT INFORMATION
  Report Type: Report from Study
  Country: CO (occurrence: CO)
  Receive Date: 20210702
  Receipt Date: 20210925
  Transmission Date: 20211014
  Serious: Yes (Other)
  Sender: FDA-Public Use
  Company Number: NVSC2021CO144321

PATIENT
  Age: 50 Year
  Sex: Male
  Weight: 71 kg

DRUGS (2)
  1. COSENTYX [Suspect]
     Active Substance: SECUKINUMAB
     Indication: PSORIASIS
     Dosage: UNK, Q2W
     Route: 058
  2. MULTIVITAMINS [Concomitant]
     Active Substance: VITAMINS
     Indication: IMMUNE SYSTEM DISORDER
     Dosage: UNK
     Route: 065

REACTIONS (9)
  - Headache [Unknown]
  - Pain [Unknown]
  - Speech disorder [Unknown]
  - Decreased appetite [Unknown]
  - COVID-19 [Unknown]
  - Product use issue [Unknown]
  - Asphyxia [Unknown]
  - Pyrexia [Unknown]
  - Ageusia [Unknown]

NARRATIVE: CASE EVENT DATE: 202106
